FAERS Safety Report 24590374 (Version 4)
Quarter: 2024Q4

REPORT INFORMATION
  Report Type: Spontaneous
  Country: FI (occurrence: FI)
  Receive Date: 20241107
  Receipt Date: 20241206
  Transmission Date: 20250115
  Serious: Yes (Other)
  Sender: ABBVIE
  Company Number: FI-ABBVIE-5991695

PATIENT
  Sex: Male

DRUGS (1)
  1. VENETOCLAX [Suspect]
     Active Substance: VENETOCLAX
     Indication: Product used for unknown indication
     Route: 048
     Dates: start: 20231012, end: 20231013

REACTIONS (12)
  - Neutropenia [Recovered/Resolved]
  - Splenomegaly [Recovering/Resolving]
  - Pyrexia [Unknown]
  - Blast cells present [Unknown]
  - B-cell small lymphocytic lymphoma [Unknown]
  - Chronic lymphocytic leukaemia transformation [Unknown]
  - Anaemia [Unknown]
  - Pyrexia [Recovered/Resolved]
  - Metapneumovirus infection [Unknown]
  - Blood lactate dehydrogenase increased [Recovering/Resolving]
  - Pyrexia [Recovered/Resolved]
  - Respiratory tract congestion [Unknown]

NARRATIVE: CASE EVENT DATE: 20230101
